FAERS Safety Report 12564948 (Version 2)
Quarter: 2016Q4

REPORT INFORMATION
  Report Type: Report from Study
  Country: US (occurrence: US)
  Receive Date: 20160718
  Receipt Date: 20161005
  Transmission Date: 20170207
  Serious: No
  Sender: FDA-Public Use
  Company Number: PHEH2016US016896

PATIENT
  Sex: Male

DRUGS (1)
  1. COSENTYX [Suspect]
     Active Substance: SECUKINUMAB
     Indication: PSORIASIS
     Dosage: 300 MG, QMO
     Route: 058
     Dates: start: 20160701

REACTIONS (7)
  - Feeling abnormal [Unknown]
  - Skin exfoliation [Not Recovered/Not Resolved]
  - Pain [Recovering/Resolving]
  - Skin fissures [Unknown]
  - Peripheral swelling [Unknown]
  - Rash [Unknown]
  - Pruritus [Unknown]
